FAERS Safety Report 9169377 (Version 3)
Quarter: 2013Q2

REPORT INFORMATION
  Report Type: Spontaneous
  Country: US (occurrence: US)
  Receive Date: 20130318
  Receipt Date: 20130510
  Transmission Date: 20140414
  Serious: Yes (Hospitalization, Other)
  Sender: FDA-Public Use
  Company Number: US-ROCHE-1200053

PATIENT
  Age: 51 Year
  Sex: Female
  Weight: 49.03 kg

DRUGS (12)
  1. KADCYLA [Suspect]
     Indication: BREAST CANCER
     Route: 042
     Dates: start: 20130304
  2. OXYCONTIN [Concomitant]
     Route: 065
     Dates: start: 20130318
  3. BUDESONIDE [Concomitant]
     Dosage: ML
     Route: 065
  4. ALBUTEROL SULFATE [Concomitant]
     Dosage: 2.5 MG/3 ML
     Route: 065
  5. HYDROCHLOROTHIAZIDE [Concomitant]
     Route: 065
  6. OMEPRAZOLE [Concomitant]
     Route: 065
  7. VITAMIN D2 [Concomitant]
  8. EMLA [Concomitant]
     Route: 061
  9. CLARITIN [Concomitant]
     Route: 065
  10. NEUPOGEN [Concomitant]
     Dosage: 300 MCG/0.5 ML
     Route: 065
  11. XGEVA [Concomitant]
     Dosage: 120 MG/1.7ML
     Route: 058
  12. PERCOCET [Concomitant]
     Dosage: 10 MG -325 MG
     Route: 065

REACTIONS (6)
  - Pneumonia [Recovered/Resolved]
  - Flank pain [Recovering/Resolving]
  - Dyspnoea [Unknown]
  - Pyrexia [Recovered/Resolved]
  - Pain [Recovered/Resolved]
  - Cough [Recovered/Resolved]
